FAERS Safety Report 4963999-0 (Version None)
Quarter: 2006Q2

REPORT INFORMATION
  Report Type: 
  Country: None (occurrence: None)
  Receive Date: 20060405
  Receipt Date: 20060329
  Transmission Date: 20061013
  Serious: Yes (Hospitalization)
  Sender: FDA-Public Use
  Company Number: AU-MERCK-0603AUS00234

PATIENT
  Age: 75 Year
  Sex: Female

DRUGS (12)
  1. ASPIRIN [Concomitant]
     Route: 065
  2. CARVEDILOL [Concomitant]
     Route: 065
  3. CANDESARTAN CILEXETIL [Concomitant]
     Route: 065
  4. [THERAPY UNSPECIFIED] [Concomitant]
     Route: 065
  5. [THERAPY UNSPECIFIED] [Concomitant]
     Route: 065
  6. BUDESONIDE [Concomitant]
     Route: 065
  7. CEFACLOR [Concomitant]
     Route: 065
  8. AMOXICILLIN AND CLAVULANATE POTASSIUM [Concomitant]
     Route: 065
  9. CEPHALEXIN [Concomitant]
     Route: 065
  10. CLARITHROMYCIN [Suspect]
     Indication: UPPER RESPIRATORY TRACT INFECTION
     Route: 065
     Dates: start: 20040706
  11. GEMFIBROZIL [Suspect]
     Indication: METABOLIC SYNDROME
     Route: 048
     Dates: start: 20000101, end: 20040728
  12. ZOCOR [Suspect]
     Indication: METABOLIC SYNDROME
     Route: 065
     Dates: start: 20010815, end: 20040728

REACTIONS (5)
  - BLOOD CREATINE PHOSPHOKINASE INCREASED [None]
  - CHROMATURIA [None]
  - DRUG INTERACTION [None]
  - MUSCULAR WEAKNESS [None]
  - RHABDOMYOLYSIS [None]
